FAERS Safety Report 24758645 (Version 1)
Quarter: 2024Q4

REPORT INFORMATION
  Report Type: Spontaneous
  Country: US (occurrence: US)
  Receive Date: 20241220
  Receipt Date: 20241220
  Transmission Date: 20250114
  Serious: No
  Sender: AUROBINDO
  Company Number: US-AUROBINDO-AUR-APL-2023-077385

PATIENT
  Age: 65 Year
  Sex: Female
  Weight: 54.43 kg

DRUGS (2)
  1. AMOXICILLIN [Suspect]
     Active Substance: AMOXICILLIN
     Indication: Sinusitis
     Dosage: 1 DOSAGE FORM
     Route: 065
     Dates: start: 20231128, end: 20231128
  2. SUDAFED [Concomitant]
     Active Substance: PSEUDOEPHEDRINE HYDROCHLORIDE
     Indication: Sinusitis
     Dosage: UNK
     Route: 065

REACTIONS (11)
  - Insomnia [Unknown]
  - Bronchitis [Not Recovered/Not Resolved]
  - Cough [Not Recovered/Not Resolved]
  - Constipation [Recovered/Resolved]
  - Diarrhoea [Unknown]
  - Wheezing [Unknown]
  - Illness [Not Recovered/Not Resolved]
  - Productive cough [Recovered/Resolved]
  - Headache [Recovered/Resolved]
  - Product formulation issue [Unknown]
  - Drug ineffective [Unknown]

NARRATIVE: CASE EVENT DATE: 20231128
